FAERS Safety Report 9552782 (Version 1)
Quarter: 2013Q3

REPORT INFORMATION
  Report Type: Other
  Country: US (occurrence: US)
  Receive Date: 20130925
  Receipt Date: 20130925
  Transmission Date: 20140515
  Serious: Yes (Hospitalization)
  Sender: FDA-Public Use
  Company Number: US-SHIRE-ALL1-2013-06458

PATIENT
  Age: 83 Year
  Sex: Female
  Weight: 52.15 kg

DRUGS (1)
  1. LIALDA [Suspect]
     Indication: COLITIS ULCERATIVE
     Dosage: 2.4 G, 2X/DAY:BID
     Route: 048

REACTIONS (3)
  - Hip fracture [Recovered/Resolved]
  - Fall [Recovered/Resolved]
  - Drug prescribing error [Not Recovered/Not Resolved]
